FAERS Safety Report 14398503 (Version 3)
Quarter: 2018Q1

REPORT INFORMATION
  Report Type: Report from Study
  Country: None (occurrence: CH)
  Receive Date: 20180116
  Receipt Date: 20180216
  Transmission Date: 20180509
  Serious: Yes (Hospitalization, Other)
  Sender: FDA-Public Use
  Company Number: CH-ABBVIE-18K-151-2223374-00

PATIENT
  Age: 55 Year
  Sex: Female

DRUGS (32)
  1. SPIRICORT [Concomitant]
     Active Substance: PREDNISOLONE
     Indication: PRODUCT USED FOR UNKNOWN INDICATION
     Dosage: AS OF 05-JAN-2018, FURTHER REDUCTION ACCORDING TO A SEPARATE SHEME. IN THE MORNING
  2. CORTISONE [Concomitant]
     Active Substance: CORTISONE\HYDROCORTISONE
     Indication: PRODUCT USED FOR UNKNOWN INDICATION
  3. HYDROCORTISON GALEPHARM [Concomitant]
     Indication: PRODUCT USED FOR UNKNOWN INDICATION
     Dosage: MORNING, LUNCH TIME, EVENING, NIGHT TIME
  4. RIVOTRIL [Concomitant]
     Active Substance: CLONAZEPAM
     Indication: PRODUCT USED FOR UNKNOWN INDICATION
     Dosage: AT NIGHT TIME
  5. PREGNENOLONE [Concomitant]
     Active Substance: PREGNENOLONE
     Indication: PRODUCT USED FOR UNKNOWN INDICATION
     Dosage: IN THE MORNING
     Route: 048
  6. MAGNESIOCARD [Concomitant]
     Active Substance: MAGNESIUM ASPARTATE HYDROCHLORIDE
     Indication: PRODUCT USED FOR UNKNOWN INDICATION
     Dosage: 121.5MG, NO MORE THAN ONE SACHET PER 24HOURS, AS NEEDED
  7. HUMIRA [Suspect]
     Active Substance: ADALIMUMAB
     Indication: POLYGLANDULAR DISORDER
  8. FERRUM HAUSMANN [Concomitant]
     Active Substance: FERROUS FUMARATE
     Indication: PRODUCT USED FOR UNKNOWN INDICATION
     Dosage: IN THE MORNING
  9. RIVOTRIL [Concomitant]
     Active Substance: CLONAZEPAM
     Indication: EPILEPSY
     Dosage: NO MORE THAN ONCE EVERY 24HOURS, AS NEEDED
     Route: 030
  10. RIVOTRIL [Concomitant]
     Active Substance: CLONAZEPAM
     Dosage: 1MG=10DROPS; NO MORE THAN 3DROPS EVERY 24HOURS, AS NEEDED
  11. CETALLERG [Concomitant]
     Active Substance: CETIRIZINE HYDROCHLORIDE
     Indication: PRODUCT USED FOR UNKNOWN INDICATION
     Dosage: NO MORE THAN 1 TABLET EVERY 24HOURS, AS NEEDED
  12. DORMICUM [Concomitant]
     Indication: EPILEPSY
     Dosage: NO MORE THAN 2 DOSES EVERY 24HOURS
  13. HUMIRA [Suspect]
     Active Substance: ADALIMUMAB
     Indication: RHEUMATIC DISORDER
     Dosage: 2 INJECTIONS
     Route: 058
  14. HUMIRA [Suspect]
     Active Substance: ADALIMUMAB
     Indication: BEHCET^S SYNDROME
  15. CANNABIS OIL [Concomitant]
     Active Substance: CANNABIS SATIVA SEED OIL
     Indication: PRODUCT USED FOR UNKNOWN INDICATION
     Dosage: 6 DROPS IN THE MORNING AND AT LUNCH TIME 25 DROPS IN THE EVENING
  16. VITAMINE B COMPLEX [Concomitant]
     Active Substance: CYANOCOBALAMIN\PYRIDOXINE HYDROCHLORIDE\RIBOFLAVIN\SODIUM PANTOTHENATE\THIAMINE HYDROCHLORIDE\VITAMIN B COMPLEX
     Indication: PRODUCT USED FOR UNKNOWN INDICATION
     Dosage: AT LUNCH TIME
     Route: 048
  17. BENZODIAZEPINE [Concomitant]
     Active Substance: BENZODIAZEPINE
     Indication: PRODUCT USED FOR UNKNOWN INDICATION
  18. NOVALGIN (METAMIZOLE SODIUM) [Concomitant]
     Active Substance: METAMIZOLE SODIUM
     Indication: PRODUCT USED FOR UNKNOWN INDICATION
  19. LAMICTAL DISP [Concomitant]
     Indication: PRODUCT USED FOR UNKNOWN INDICATION
     Dosage: IN THE MORNING
  20. FRAGMIN [Concomitant]
     Active Substance: DALTEPARIN SODIUM
     Indication: PRODUCT USED FOR UNKNOWN INDICATION
     Dosage: 500 UI/0.2ML, ACCORDING TO A SEPARATE SCHEME
  21. SPIRICORT [Concomitant]
     Active Substance: PREDNISOLONE
     Dosage: AS OF 05-JAN-2018, FURTHER REDUCTION ACCORDING TO A SEPARATE SHEME. IN THE MORNING
  22. 5-HYDROXYTRYPTOPHAN [Concomitant]
     Active Substance: OXITRIPTAN
     Indication: PRODUCT USED FOR UNKNOWN INDICATION
     Dosage: MORNING, LUNCH TIME, EVENING
     Route: 048
  23. EUPHRASIA OFFICINALIS [Concomitant]
     Indication: PRODUCT USED FOR UNKNOWN INDICATION
     Dosage: NO MORE THAN 4 DROPS EVERY 24HOURS, AS NEEDED
  24. VITAMIN D3 [Concomitant]
     Active Substance: CHOLECALCIFEROL
     Indication: PRODUCT USED FOR UNKNOWN INDICATION
     Dosage: IN THE MORNING
  25. CIMIFEMIN FORTE [Concomitant]
     Active Substance: BLACK COHOSH
     Indication: PRODUCT USED FOR UNKNOWN INDICATION
     Dosage: IN THE MORNING
  26. KCL RETARD HAUSMANN RET [Concomitant]
     Indication: PRODUCT USED FOR UNKNOWN INDICATION
     Dosage: DRAGEE, AS NEEDED, IN THE MORNING
  27. PRO VITA D3 [Concomitant]
     Indication: PRODUCT USED FOR UNKNOWN INDICATION
     Dosage: OIL, AT LUNCH TIME
  28. DHEA [Concomitant]
     Active Substance: PRASTERONE
     Indication: PRODUCT USED FOR UNKNOWN INDICATION
     Dosage: IN THE MORNING
     Route: 048
  29. SYMBICORT [Concomitant]
     Active Substance: BUDESONIDE\FORMOTEROL FUMARATE DIHYDRATE
     Indication: PRODUCT USED FOR UNKNOWN INDICATION
     Dosage: 6/200 MCG PER DOSE; NO MORE THAN TWICE EVERY 24HOURS, AS NEEDED
     Route: 055
  30. EFFENTORA [Concomitant]
     Active Substance: FENTANYL CITRATE
     Indication: PRODUCT USED FOR UNKNOWN INDICATION
     Dosage: NO MORE THAN 1 TABLET EVERY 24HOURS, AS NEEDED
     Route: 002
  31. OXIS TURBOHALER [Concomitant]
     Indication: PRODUCT USED FOR UNKNOWN INDICATION
     Dosage: 12 MCG PER DOSAGE; NO MORE THAN TWICE EVERY 24HOURS
     Route: 055
  32. TRAMAL [Concomitant]
     Active Substance: TRAMADOL
     Indication: PRODUCT USED FOR UNKNOWN INDICATION
     Dosage: 100MG=40DROPS; NO MORE THAN 20DROPS PER 24HOURS, AS NEEDED

REACTIONS (15)
  - Alanine aminotransferase increased [Unknown]
  - Neutrophil count increased [Unknown]
  - Monocyte count decreased [Unknown]
  - Prothrombin time shortened [Unknown]
  - Eosinophil count decreased [Unknown]
  - Lymphocyte count decreased [Unknown]
  - Pyrexia [Not Recovered/Not Resolved]
  - Gamma-glutamyltransferase increased [Unknown]
  - Partial seizures [Not Recovered/Not Resolved]
  - Eczema [Not Recovered/Not Resolved]
  - Epilepsy [Recovered/Resolved]
  - Tachycardia [Not Recovered/Not Resolved]
  - Haematocrit increased [Unknown]
  - Red blood cell count increased [Unknown]
  - Aspartate aminotransferase increased [Unknown]

NARRATIVE: CASE EVENT DATE: 20171229
